FAERS Safety Report 22266300 (Version 1)
Quarter: 2023Q2

REPORT INFORMATION
  Report Type: Spontaneous
  Country: CN (occurrence: CN)
  Receive Date: 20230428
  Receipt Date: 20230428
  Transmission Date: 20230721
  Serious: Yes (Hospitalization)
  Sender: FDA-Public Use
  Company Number: CN-009507513-2304CHN010684

PATIENT
  Age: 71 Year
  Sex: Female
  Weight: 59 kg

DRUGS (9)
  1. KEYTRUDA [Suspect]
     Active Substance: PEMBROLIZUMAB
     Indication: Endometrial adenocarcinoma
     Dosage: 200 MG, ONCE
     Route: 041
     Dates: start: 20230203
  2. KEYTRUDA [Suspect]
     Active Substance: PEMBROLIZUMAB
     Dosage: 200 MG, ONCE
     Route: 041
     Dates: start: 20230302
  3. KEYTRUDA [Suspect]
     Active Substance: PEMBROLIZUMAB
     Dosage: 200 MG, ONCE
     Route: 041
     Dates: start: 20230327, end: 20230327
  4. PACLITAXEL [Concomitant]
     Active Substance: PACLITAXEL
     Indication: Endometrial cancer
     Dosage: UNK
     Dates: start: 20230203
  5. PACLITAXEL [Concomitant]
     Active Substance: PACLITAXEL
     Dosage: UNK
     Dates: start: 20230302
  6. PACLITAXEL [Concomitant]
     Active Substance: PACLITAXEL
     Dosage: UNK
     Dates: start: 20230327
  7. CATEQUENTINIB [Concomitant]
     Active Substance: CATEQUENTINIB
     Indication: Endometrial cancer
     Dates: start: 20230203
  8. CATEQUENTINIB [Concomitant]
     Active Substance: CATEQUENTINIB
     Dates: start: 20230302
  9. CATEQUENTINIB [Concomitant]
     Active Substance: CATEQUENTINIB
     Dates: start: 20230327

REACTIONS (7)
  - Urinary tract infection [Recovering/Resolving]
  - Rash [Unknown]
  - Back pain [Unknown]
  - Pain in extremity [Unknown]
  - Product use in unapproved indication [Unknown]
  - Inappropriate schedule of product administration [Unknown]
  - Inappropriate schedule of product administration [Unknown]

NARRATIVE: CASE EVENT DATE: 20230101
